FAERS Safety Report 11022186 (Version 1)
Quarter: 2015Q2

REPORT INFORMATION
  Report Type: Spontaneous
  Country: DE (occurrence: DE)
  Receive Date: 20150413
  Receipt Date: 20150413
  Transmission Date: 20150821
  Serious: Yes (Other)
  Sender: FDA-Public Use
  Company Number: DE-ROCHE-1563287

PATIENT
  Age: 40 Year
  Sex: Male

DRUGS (2)
  1. LUCENTIS [Suspect]
     Active Substance: RANIBIZUMAB
     Indication: CHOROIDAL NEOVASCULARISATION
     Dosage: RIGHT EYE
     Route: 050
     Dates: start: 2015
  2. LUCENTIS [Suspect]
     Active Substance: RANIBIZUMAB
     Indication: VISUAL IMPAIRMENT
     Dosage: 10 MG/ML, LEFT EYE
     Route: 050
     Dates: start: 2012, end: 2012

REACTIONS (2)
  - Blindness unilateral [Unknown]
  - No therapeutic response [Unknown]

NARRATIVE: CASE EVENT DATE: 2012
